FAERS Safety Report 12642135 (Version 4)
Quarter: 2017Q1

REPORT INFORMATION
  Report Type: Report from Study
  Country: DE (occurrence: DE)
  Receive Date: 20160810
  Receipt Date: 20170212
  Transmission Date: 20170428
  Serious: Yes (Other)
  Sender: FDA-Public Use
  Company Number: PHHY2016DE028663

PATIENT
  Age: 43 Year
  Sex: Male

DRUGS (5)
  1. GILENYA [Suspect]
     Active Substance: FINGOLIMOD HYDROCHLORIDE
     Indication: MULTIPLE SCLEROSIS
     Dosage: 0.5 MG, QD
     Route: 048
     Dates: start: 20140721
  2. PRAMIPEXOLE. [Concomitant]
     Active Substance: PRAMIPEXOLE
     Indication: RESTLESS LEGS SYNDROME
     Dosage: 0.18 MG, QD
     Route: 048
     Dates: start: 20141022
  3. CITALOPRAM [Concomitant]
     Active Substance: CITALOPRAM HYDROBROMIDE
     Indication: CHRONIC FATIGUE SYNDROME
  4. GINGIUM [Concomitant]
     Active Substance: GINKGO BILOBA LEAF EXTRACT
     Indication: DISTURBANCE IN ATTENTION
     Dosage: 80 MG, QD
     Route: 048
     Dates: start: 20101124
  5. CITALOPRAM [Concomitant]
     Active Substance: CITALOPRAM HYDROBROMIDE
     Indication: DEPRESSION
     Dosage: 20 MG, QD
     Route: 048
     Dates: start: 20090914

REACTIONS (10)
  - Blood triglycerides increased [Unknown]
  - Pancreatitis [Not Recovered/Not Resolved]
  - Alanine aminotransferase increased [Unknown]
  - Headache [Unknown]
  - Hepatic steatosis [Not Recovered/Not Resolved]
  - Gamma-glutamyltransferase increased [Unknown]
  - Lipid metabolism disorder [Unknown]
  - Diplopia [Unknown]
  - Diarrhoea [Unknown]
  - Dyslipidaemia [Unknown]

NARRATIVE: CASE EVENT DATE: 20150409
